FAERS Safety Report 8990488 (Version 1)
Quarter: 2012Q4

REPORT INFORMATION
  Report Type: 
  Country: US (occurrence: US)
  Receive Date: 20121228
  Receipt Date: 20121228
  Transmission Date: 20130627
  Serious: Yes (Hospitalization)
  Sender: FDA-Public Use
  Company Number: US-SANOFI-AVENTIS-2012SA095193

PATIENT
  Sex: Male

DRUGS (2)
  1. LANTUS SOLOSTAR [Suspect]
     Indication: DIABETES MELLITUS
     Dosage: Dose:40 unit(s)
     Route: 058
  2. SOLOSTAR [Suspect]
     Indication: DIABETES MELLITUS

REACTIONS (4)
  - Bacterial infection [Recovering/Resolving]
  - Blood glucose decreased [Unknown]
  - Hyperhidrosis [Unknown]
  - Tremor [Unknown]
